FAERS Safety Report 5403496-1 (Version None)
Quarter: 2007Q3

REPORT INFORMATION
  Report Type: 
  Country: None (occurrence: None)
  Receive Date: 20070713
  Receipt Date: 20070202
  Transmission Date: 20080115
  Serious: No
  Sender: FDA-Public Use
  Company Number: US-JNJFOC-20060601737

PATIENT
  Age: 20 Year
  Sex: Female

DRUGS (2)
  1. ORTHO EVRA [Suspect]
     Indication: CONTRACEPTION
     Dosage: TRANSDERMAL
     Route: 062
     Dates: start: 20020530, end: 20020601
  2. MACRODANTIN [Concomitant]

REACTIONS (2)
  - URINARY TRACT INFECTION [None]
  - VOMITING [None]
